FAERS Safety Report 5264641-4 (Version None)
Quarter: 2007Q1

REPORT INFORMATION
  Report Type: 
  Country: None (occurrence: None)
  Receive Date: 20070314
  Receipt Date: 20070309
  Transmission Date: 20070707
  Serious: Yes (Hospitalization)
  Sender: FDA-Public Use
  Company Number: JP-BRISTOL-MYERS SQUIBB COMPANY-13699194

PATIENT
  Age: 77 Year
  Sex: Female

DRUGS (4)
  1. BARACLUDE [Suspect]
     Indication: HEPATITIS B
     Route: 048
     Dates: start: 20061205, end: 20070126
  2. MEDROL [Suspect]
  3. RENIVACE [Concomitant]
     Route: 048
  4. TAKEPRON [Concomitant]

REACTIONS (1)
  - PANCYTOPENIA [None]
